FAERS Safety Report 4963118-0 (Version None)
Quarter: 2006Q2

REPORT INFORMATION
  Report Type: 
  Country: None (occurrence: None)
  Receive Date: 20060405
  Receipt Date: 20060327
  Transmission Date: 20061013
  Serious: Yes (Hospitalization)
  Sender: FDA-Public Use
  Company Number: PL-GLAXOSMITHKLINE-B0419031A

PATIENT
  Age: 1 Year
  Sex: Female
  Weight: 10.9 kg

DRUGS (3)
  1. AUGMENTIN '125' [Suspect]
     Indication: BRONCHITIS
     Dosage: 5.6ML PER DAY
     Route: 048
     Dates: start: 20060123, end: 20060129
  2. KETOTIFEN [Concomitant]
     Dosage: 2.5ML TWICE PER DAY
     Route: 065
     Dates: start: 20060123
  3. NUTRAMIGEN [Concomitant]
     Route: 065

REACTIONS (2)
  - DIARRHOEA [None]
  - HYPOGAMMAGLOBULINAEMIA [None]
